FAERS Safety Report 9029275 (Version 2)
Quarter: 2013Q1

REPORT INFORMATION
  Report Type: Spontaneous
  Country: ES (occurrence: ES)
  Receive Date: 20130125
  Receipt Date: 20130315
  Transmission Date: 20140127
  Serious: Yes (Hospitalization)
  Sender: FDA-Public Use
  Company Number: ES-ELI_LILLY_AND_COMPANY-ES201301005806

PATIENT
  Age: 70 Year
  Sex: Male
  Weight: 60 kg

DRUGS (15)
  1. FORSTEO [Suspect]
     Indication: OSTEOPOROSIS
     Dosage: 20 UG, QD
     Route: 058
     Dates: start: 200805
  2. FORSTEO [Suspect]
     Dosage: 20 UG, QD
     Route: 058
     Dates: start: 20100321
  3. CALCIUM SANDOZ [Concomitant]
     Indication: OSTEOPOROSIS
     Dosage: 1 DF, QD
     Route: 048
  4. PANTECTA [Concomitant]
     Indication: GASTRITIS PROPHYLAXIS
     Dosage: 1 DF, QD
     Route: 048
  5. TRANXILIUM [Concomitant]
     Indication: ANXIETY
     Dosage: 5 MG, EACH EVENING
     Route: 048
  6. PULMENO [Concomitant]
     Indication: BRONCHIAL DISORDER
     Dosage: UNK, QD
     Route: 055
  7. ACETILCISTEINA [Concomitant]
     Dosage: 200 MG, EVERY 8 HRS
     Route: 048
  8. SPIRIVA [Concomitant]
     Indication: BRONCHIAL DISORDER
     Dosage: UNK, QD
     Route: 055
  9. OPONAF [Concomitant]
     Indication: LIVER DISORDER
     Dosage: 10 MG, QD
     Route: 048
  10. VENTOLIN                           /00139501/ [Concomitant]
     Indication: BRONCHIAL DISORDER
     Dosage: UNK, PRN
     Route: 055
  11. SUTRIL [Concomitant]
     Indication: HYPERTENSION
     Dosage: 10 MG, BID
     Route: 048
  12. SINTROM [Concomitant]
     Indication: ANTICOAGULANT THERAPY
     Dosage: 1 MG, PRN
     Route: 048
  13. PLUSVENT [Concomitant]
     Indication: BRONCHIAL DISORDER
     Dosage: 500 MG, BID
     Route: 048
  14. CARDURAN [Concomitant]
     Indication: HYPERTENSION
     Dosage: 1 DF, QD
     Route: 048
  15. OXYNORM [Concomitant]
     Indication: ANALGESIC THERAPY
     Dosage: 5 MG, BID
     Route: 048

REACTIONS (2)
  - Cardiac arrest [Recovering/Resolving]
  - Loss of consciousness [Recovering/Resolving]
